FAERS Safety Report 22305659 (Version 2)
Quarter: 2023Q2

REPORT INFORMATION
  Report Type: Spontaneous
  Country: JP (occurrence: JP)
  Receive Date: 20230510
  Receipt Date: 20230528
  Transmission Date: 20230721
  Serious: Yes (Other)
  Sender: FDA-Public Use
  Company Number: JP-SA-2023SA142691

PATIENT
  Age: 86 Year
  Sex: Male

DRUGS (2)
  1. PLAVIX [Suspect]
     Active Substance: CLOPIDOGREL BISULFATE
     Indication: Angina pectoris
     Route: 048
  2. ASPIRIN [Concomitant]
     Active Substance: ASPIRIN
     Indication: Angina pectoris
     Route: 065

REACTIONS (8)
  - Cardio-respiratory arrest [Unknown]
  - Shock haemorrhagic [Unknown]
  - Cystitis radiation [Unknown]
  - Bladder tamponade [Unknown]
  - Postresuscitation encephalopathy [Unknown]
  - Diverticulum intestinal haemorrhagic [Unknown]
  - Haematuria [Unknown]
  - Melaena [Unknown]
